FAERS Safety Report 18892666 (Version 1)
Quarter: 2021Q1

REPORT INFORMATION
  Report Type: Spontaneous
  Country: CN (occurrence: CN)
  Receive Date: 20210215
  Receipt Date: 20210215
  Transmission Date: 20210420
  Serious: Yes (Hospitalization, Other)
  Sender: FDA-Public Use
  Company Number: CN-GLAXOSMITHKLINE-CN2021APC031895

PATIENT
  Age: 64 Year
  Sex: Male
  Weight: 55 kg

DRUGS (1)
  1. SALBUTAMOL SULPHATE [Suspect]
     Active Substance: ALBUTEROL SULFATE
     Indication: CHRONIC OBSTRUCTIVE PULMONARY DISEASE
     Dosage: 400 ?G, TID
     Route: 055
     Dates: start: 20210105, end: 20210125

REACTIONS (6)
  - Heart rate increased [Recovered/Resolved]
  - Overdose [Unknown]
  - Initial insomnia [Recovered/Resolved]
  - Agitation [Recovered/Resolved]
  - Chronic obstructive pulmonary disease [Unknown]
  - Hallucination [Recovered/Resolved]

NARRATIVE: CASE EVENT DATE: 20210105
